FAERS Safety Report 8091084-0 (Version None)
Quarter: 2012Q1

REPORT INFORMATION
  Report Type: 
  Country: None (occurrence: None)
  Receive Date: 20120129
  Receipt Date: 20111020
  Transmission Date: 20120608
  Serious: No
  Sender: FDA-Public Use
  Company Number: US-ABBOTT-11P-163-0867030-00

PATIENT
  Age: 62 Year
  Sex: Male

DRUGS (21)
  1. LOVAZA [Concomitant]
     Indication: SCLERODERMA
     Dosage: 20 TAKES 1 BID
  2. CALCITRIOL [Concomitant]
     Indication: VITAMIN SUPPLEMENTATION
     Dosage: 0.5 MG TAKE ONE ON MON, WED AND FRI
  3. CYANOCOBALAMIN [Concomitant]
     Indication: HYPERHOMOCYSTEINAEMIA
  4. HUMIRA [Suspect]
     Indication: PSORIASIS
     Dates: start: 20050201
  5. SIMVASTATIN [Concomitant]
     Indication: SCLERODERMA
  6. MULTI-VITAMINS [Concomitant]
     Indication: PRODUCT USED FOR UNKNOWN INDICATION
  7. LISINOPRIL [Concomitant]
     Indication: BLOOD PRESSURE
  8. PROTONIX [Concomitant]
     Indication: GASTRITIS
  9. IRON [Concomitant]
     Indication: ANAEMIA
     Dates: start: 20040101
  10. LASIX [Concomitant]
     Indication: CARDIAC FAILURE CONGESTIVE
     Dosage: 40 MG BID
     Dates: start: 20050101
  11. POTASSIUM [Concomitant]
     Indication: PRODUCT USED FOR UNKNOWN INDICATION
     Dosage: 20 TAKES 1 BID
  12. METOCLOPRAMIDE [Concomitant]
     Indication: GASTROINTESTINAL HYPOMOTILITY
     Dosage: THREE TIMES A DAY AS REQUIRED
  13. CYANOCOBALAMIN [Concomitant]
     Indication: VITAMIN SUPPLEMENTATION
  14. CALCIUM [Concomitant]
     Indication: PRODUCT USED FOR UNKNOWN INDICATION
  15. HUMIRA [Suspect]
     Dosage: EVERY OTHER WEEK
  16. NUVIGIL [Concomitant]
     Indication: SOMNOLENCE
  17. LYRICA [Concomitant]
     Indication: PAIN
     Dosage: 150 BID
  18. NIFEDIPINE [Concomitant]
     Indication: BLOOD PRESSURE
  19. DYRENIUM [Concomitant]
     Indication: MALABSORPTION
  20. METAXALONE [Concomitant]
     Indication: MYALGIA
     Dosage: THREE TIMES A DAY AS REQUIRED
  21. OXYCONTIN [Concomitant]
     Indication: PAIN
     Dosage: 80 TAB BID

REACTIONS (2)
  - PSORIASIS [None]
  - DRY SKIN [None]
